FAERS Safety Report 7164721-2 (Version None)
Quarter: 2010Q4

REPORT INFORMATION
  Report Type: 
  Country: None (occurrence: None)
  Receive Date: 20101215
  Receipt Date: 20101210
  Transmission Date: 20110411
  Serious: Yes (Other)
  Sender: FDA-Public Use
  Company Number: DE-PFIZER INC-2010169056

PATIENT
  Age: 7 Year
  Sex: Female

DRUGS (3)
  1. REVATIO [Suspect]
     Indication: PULMONARY ARTERIAL HYPERTENSION
  2. NORVASC [Concomitant]
  3. MARCUMAR [Concomitant]
     Dosage: UNK
     Dates: end: 20101201

REACTIONS (1)
  - AUTOIMMUNE HEPATITIS [None]
